FAERS Safety Report 18115431 (Version 1)
Quarter: 2020Q3

REPORT INFORMATION
  Report Type: Spontaneous
  Country: CN (occurrence: CN)
  Receive Date: 20200805
  Receipt Date: 20200805
  Transmission Date: 20201103
  Serious: Yes (Other)
  Sender: FDA-Public Use
  Company Number: CN-PFIZER INC-2020293063

PATIENT
  Age: 38 Year
  Sex: Female
  Weight: 40 kg

DRUGS (2)
  1. DIFLUCAN [Suspect]
     Active Substance: FLUCONAZOLE
     Indication: URINARY TRACT INFECTION
     Dosage: 400 MG, 1X/DAY
     Route: 041
     Dates: start: 20200709, end: 20200709
  2. DIFLUCAN [Suspect]
     Active Substance: FLUCONAZOLE
     Dosage: 200 MG, 1X/DAY
     Route: 041
     Dates: start: 20200710, end: 20200712

REACTIONS (6)
  - Erythema [Unknown]
  - Off label use [Unknown]
  - Rash pruritic [Recovering/Resolving]
  - Skin warm [Recovering/Resolving]
  - Product use in unapproved indication [Unknown]
  - Eosinophil count increased [Recovered/Resolved]

NARRATIVE: CASE EVENT DATE: 20200709
